FAERS Safety Report 8879756 (Version 2)
Quarter: 2013Q2

REPORT INFORMATION
  Report Type: Spontaneous
  Country: US (occurrence: None)
  Receive Date: 20120426
  Receipt Date: 20120703
  Transmission Date: 20140414
  Serious: No
  Sender: FDA-Public Use
  Company Number: PHEH2012US002439

PATIENT
  Age: 51 Year
  Sex: Female
  Weight: 74.8 kg

DRUGS (6)
  1. GILENYA [Suspect]
     Route: 048
  2. FAMPRIDINE [Suspect]
     Route: 048
  3. CENTRUM [Concomitant]
  4. LISINOPRIL (LISINOPRIL) [Concomitant]
  5. VITAMIN B12 [Concomitant]
  6. PROCHLORPERAZINE (PROCHLORPERAZINE) [Concomitant]

REACTIONS (4)
  - Nausea [None]
  - Vomiting [None]
  - Hypoaesthesia [None]
  - Paraesthesia [None]
